FAERS Safety Report 15265398 (Version 1)
Quarter: 2018Q3

REPORT INFORMATION
  Report Type: Spontaneous
  Country: US (occurrence: US)
  Receive Date: 20180723
  Receipt Date: 20180723
  Transmission Date: 20181010
  Serious: Yes (Life-Threatening, Hospitalization, Disabling, Other)
  Sender: FDA-Public Use
  Company Number: None

PATIENT
  Age: 67 Year
  Sex: Male
  Weight: 125.19 kg

DRUGS (12)
  1. PLAVIX [Concomitant]
     Active Substance: CLOPIDOGREL BISULFATE
  2. ARISTADA [Suspect]
     Active Substance: ARIPIPRAZOLE LAUROXIL
     Indication: SCHIZOPHRENIA
     Dosage: ?          QUANTITY:1 DF DOSAGE FORM;?
  3. NEURONTIN [Concomitant]
     Active Substance: GABAPENTIN
  4. CARVEDILOL. [Concomitant]
     Active Substance: CARVEDILOL
  5. ULTIVITM 50 MG HBL VITAMIN B?12 SL MG TABLET (CYANOCOBALAMIN) [Concomitant]
  6. LIPITOR [Concomitant]
     Active Substance: ATORVASTATIN CALCIUM
  7. POTASSIUM CHLORIDE (K?DUR KLOR?CON) [Concomitant]
  8. RAPAFLO [Concomitant]
     Active Substance: SILODOSIN
  9. CYCLOBENZAPRINE (FLEXERIL) [Concomitant]
  10. INSULIN DEMITIR (LEVEMIR) [Concomitant]
  11. SYNTHROID [Concomitant]
     Active Substance: LEVOTHYROXINE SODIUM
  12. RANEXA [Concomitant]
     Active Substance: RANOLAZINE

REACTIONS (3)
  - Hypotension [None]
  - Myocardial infarction [None]
  - Red blood cell count decreased [None]
